FAERS Safety Report 21707331 (Version 1)
Quarter: 2022Q4

REPORT INFORMATION
  Report Type: Spontaneous
  Country: ES (occurrence: ES)
  Receive Date: 20221209
  Receipt Date: 20221209
  Transmission Date: 20230113
  Serious: Yes (Other)
  Sender: FDA-Public Use
  Company Number: None

PATIENT
  Age: 41 Year
  Sex: Female
  Weight: 58 kg

DRUGS (2)
  1. ETHINYL ESTRADIOL\LEVONORGESTREL [Suspect]
     Active Substance: ETHINYL ESTRADIOL\LEVONORGESTREL
     Indication: Oral contraception
     Dosage: 1 DF, DAILY BEFORE BED
     Route: 048
     Dates: start: 202204, end: 202209
  2. LAURIMIC [Concomitant]
     Indication: Candida infection
     Dosage: 1 DF, ONE A DAY BEFORE BEDTIME PER 3 DAYS
     Route: 067

REACTIONS (2)
  - Hepatomegaly [Unknown]
  - Intermenstrual bleeding [Unknown]

NARRATIVE: CASE EVENT DATE: 20220501
